FAERS Safety Report 21800196 (Version 2)
Quarter: 2023Q1

REPORT INFORMATION
  Report Type: Other
  Country: US (occurrence: None)
  Receive Date: 20221230
  Receipt Date: 20230113
  Transmission Date: 20230417
  Serious: Yes (Other)
  Sender: FDA-Public Use
  Company Number: US-ROCHE-3254239

PATIENT
  Age: 84 Year
  Sex: Female

DRUGS (1)
  1. ERIVEDGE [Suspect]
     Active Substance: VISMODEGIB
     Indication: Basal cell carcinoma
     Route: 048

REACTIONS (6)
  - Alopecia [Unknown]
  - Muscle spasms [Unknown]
  - Arthropathy [Unknown]
  - Taste disorder [Unknown]
  - Diabetes mellitus [Unknown]
  - Madarosis [Unknown]
